FAERS Safety Report 5136080-8 (Version None)
Quarter: 2006Q4

REPORT INFORMATION
  Report Type: 
  Country: None (occurrence: None)
  Receive Date: 20061027
  Receipt Date: 20061020
  Transmission Date: 20070319
  Serious: Yes (Hospitalization)
  Sender: FDA-Public Use
  Company Number: 2006UW20394

PATIENT
  Age: 66 Year
  Sex: Male
  Weight: 76 kg

DRUGS (6)
  1. MERREM [Suspect]
     Indication: URINARY TRACT INFECTION
     Route: 042
     Dates: start: 20060901, end: 20060903
  2. DIOVAN [Concomitant]
     Indication: HYPERTENSION
     Route: 048
     Dates: start: 20060822, end: 20060930
  3. PANTOZOL [Concomitant]
     Route: 048
     Dates: start: 20060822, end: 20060929
  4. ASPIRIN [Concomitant]
     Indication: ANTICOAGULANT THERAPY
     Route: 048
     Dates: start: 20060822, end: 20060929
  5. SECOTEX [Concomitant]
     Indication: PROSTATE EXAMINATION ABNORMAL
     Route: 048
     Dates: start: 20060822, end: 20060929
  6. ZOLPIDEM TARTRATE [Concomitant]
     Indication: SEDATION
     Route: 048
     Dates: start: 20060822

REACTIONS (6)
  - BLOOD PRESSURE INCREASED [None]
  - DYSPNOEA [None]
  - FATIGUE [None]
  - HEPATIC ENZYME ABNORMAL [None]
  - RESTLESSNESS [None]
  - TREMOR [None]
